FAERS Safety Report 21481852 (Version 1)
Quarter: 2022Q4

REPORT INFORMATION
  Report Type: Spontaneous
  Country: US (occurrence: US)
  Receive Date: 20221020
  Receipt Date: 20221020
  Transmission Date: 20230113
  Serious: No
  Sender: FDA-Public Use
  Company Number: US-CELLTRION INC.-2022US002498

PATIENT

DRUGS (1)
  1. INFLECTRA [Suspect]
     Active Substance: INFLIXIMAB-DYYB
     Indication: Colitis ulcerative
     Dosage: 10 MILLIGRAM, EVERY 8 WEEKS
     Route: 065

REACTIONS (4)
  - Insurance issue [Unknown]
  - Therapy interrupted [Unknown]
  - Therapy change [Unknown]
  - Underdose [Unknown]
